FAERS Safety Report 9623540 (Version 3)
Quarter: 2013Q4

REPORT INFORMATION
  Report Type: Spontaneous
  Country: JP (occurrence: JP)
  Receive Date: 20131015
  Receipt Date: 20131022
  Transmission Date: 20140711
  Serious: Yes (Death, Hospitalization, Other)
  Sender: FDA-Public Use
  Company Number: JP-BAYER-2013-121999

PATIENT
  Age: 70 Year
  Sex: Male

DRUGS (5)
  1. BAYASPIRIN [Suspect]
     Indication: ATRIAL FIBRILLATION
     Dosage: UNK
     Route: 048
     Dates: start: 20130113
  2. ACETYLSALICYLIC ACID (} 100 MG) [Suspect]
     Indication: ATRIAL FIBRILLATION
     Dosage: UNK
     Route: 048
     Dates: start: 20130125
  3. ACETYLSALICYLIC ACID (} 100 MG) [Suspect]
     Indication: CARDIAC VENTRICULAR THROMBOSIS
  4. HEPARIN [Suspect]
     Indication: ATRIAL FIBRILLATION
     Dosage: UNK
     Route: 048
     Dates: start: 20130103
  5. HEPARIN [Suspect]
     Indication: CARDIAC VENTRICULAR THROMBOSIS
     Dosage: UNK
     Route: 048
     Dates: start: 20130115

REACTIONS (5)
  - Melaena [None]
  - Haematemesis [None]
  - Shock haemorrhagic [Fatal]
  - Diffuse large B-cell lymphoma [None]
  - Labelled drug-drug interaction medication error [None]
